FAERS Safety Report 5316539-0 (Version None)
Quarter: 2007Q2

REPORT INFORMATION
  Report Type: 
  Country: None (occurrence: None)
  Receive Date: 20070504
  Receipt Date: 20070501
  Transmission Date: 20071010
  Serious: Yes (Other)
  Sender: FDA-Public Use
  Company Number: 2006UW26935

PATIENT
  Age: 71 Year
  Sex: Female
  Weight: 83.2 kg

DRUGS (4)
  1. ARIMIDEX [Suspect]
     Indication: BREAST CANCER FEMALE
     Route: 048
     Dates: start: 20060101, end: 20061207
  2. PREVACID [Concomitant]
     Indication: GASTROOESOPHAGEAL REFLUX DISEASE
  3. THYROID TAB [Concomitant]
     Indication: HYPOTHYROIDISM
  4. BENICAR [Concomitant]
     Indication: HYPERTENSION

REACTIONS (10)
  - ABASIA [None]
  - ARTHRALGIA [None]
  - ARTHROPATHY [None]
  - ERYTHEMA [None]
  - FATIGUE [None]
  - HEADACHE [None]
  - HOT FLUSH [None]
  - MALAISE [None]
  - MUSCULAR WEAKNESS [None]
  - PRURITUS [None]
